FAERS Safety Report 5192947-6 (Version None)
Quarter: 2006Q4

REPORT INFORMATION
  Report Type: 
  Country: None (occurrence: None)
  Receive Date: 20061228
  Receipt Date: 20060313
  Transmission Date: 20070319
  Serious: No
  Sender: FDA-Public Use
  Company Number: US-GLAXOSMITHKLINE-A0597359A

PATIENT
  Sex: Female

DRUGS (10)
  1. FLONASE [Suspect]
     Dosage: 1SPR UNKNOWN
     Route: 045
  2. ASTELIN [Concomitant]
  3. ZYRTEC [Concomitant]
  4. SINGULAIR [Concomitant]
  5. SYNTHROID [Concomitant]
  6. PREVACID [Concomitant]
  7. PROTONIX [Concomitant]
  8. LIPITOR [Concomitant]
  9. EVISTA [Concomitant]
  10. LEXAPRO [Concomitant]

REACTIONS (4)
  - COUGH [None]
  - LACRIMATION INCREASED [None]
  - PHARMACEUTICAL PRODUCT COMPLAINT [None]
  - RHINORRHOEA [None]
